FAERS Safety Report 25934563 (Version 1)
Quarter: 2025Q4

REPORT INFORMATION
  Report Type: Spontaneous
  Country: US (occurrence: US)
  Receive Date: 20251017
  Receipt Date: 20251017
  Transmission Date: 20260118
  Serious: Yes (Hospitalization, Other)
  Sender: ABBVIE
  Company Number: US-ABBVIE-6507765

PATIENT
  Sex: Female

DRUGS (3)
  1. SYNTHROID [Suspect]
     Active Substance: LEVOTHYROXINE SODIUM
     Indication: Hypothyroidism
     Route: 048
     Dates: start: 2025, end: 20251015
  2. SYNTHROID [Suspect]
     Active Substance: LEVOTHYROXINE SODIUM
     Indication: Hypothyroidism
     Dosage: LAST ADMIN-2025
     Route: 048
     Dates: start: 20251016
  3. SYNTHROID [Suspect]
     Active Substance: LEVOTHYROXINE SODIUM
     Indication: Hypothyroidism
     Dosage: 88 MILLIGRAM
     Route: 048
     Dates: start: 2017

REACTIONS (5)
  - Hospitalisation [Unknown]
  - Fatigue [Unknown]
  - Off label use [Unknown]
  - Cardiac disorder [Unknown]
  - General symptom [Recovering/Resolving]

NARRATIVE: CASE EVENT DATE: 20170101
